FAERS Safety Report 12573898 (Version 1)
Quarter: 2016Q3

REPORT INFORMATION
  Report Type: Spontaneous
  Country: GB (occurrence: GB)
  Receive Date: 20160720
  Receipt Date: 20160720
  Transmission Date: 20161109
  Serious: Yes (Other)
  Sender: FDA-Public Use
  Company Number: GB-TEVA-676641ACC

PATIENT
  Age: 65 Year
  Sex: Male
  Weight: 117 kg

DRUGS (9)
  1. CLARITHROMYCIN. [Suspect]
     Active Substance: CLARITHROMYCIN
     Dates: start: 20160317
  2. LANSOPRAZOLE. [Concomitant]
     Active Substance: LANSOPRAZOLE
     Dosage: 1 DOSAGE FORMS DAILY;
     Dates: start: 20150506
  3. ADALAT [Concomitant]
     Active Substance: NIFEDIPINE
     Dosage: 1 DOSAGE FORMS DAILY;
     Dates: start: 20150506
  4. GENTAMICIN. [Concomitant]
     Active Substance: GENTAMICIN
     Dosage: 8 GTT DAILY; APPLY DROPS BILATERAL.
     Dates: start: 20160428, end: 20160505
  5. LISINOPRIL. [Concomitant]
     Active Substance: LISINOPRIL
     Dosage: 1 DOSAGE FORMS DAILY; HAVE ROUTINE BLOOD TESTS
     Dates: start: 20150506
  6. FYBOGEL [Concomitant]
     Active Substance: PLANTAGO OVATA SEED
     Dosage: USE AS DIRECTED.
     Dates: start: 20150907
  7. ALPHOSYL [Concomitant]
     Dosage: 1 DOSAGE FORMS DAILY;
     Dates: start: 20150506
  8. HYDROCORTISONE. [Concomitant]
     Active Substance: HYDROCORTISONE
     Dosage: 2 DOSAGE FORMS DAILY; APPLY THINLY TO THE AFFECTED AREA(S).
     Route: 061
     Dates: start: 20160428, end: 20160526
  9. CLOTRIMAZOLE. [Concomitant]
     Active Substance: CLOTRIMAZOLE
     Dosage: 3 GTT DAILY; FOR 2 WEEKS
     Route: 001
     Dates: start: 20160505, end: 20160519

REACTIONS (2)
  - Lethargy [Unknown]
  - Somnolence [Recovered/Resolved]

NARRATIVE: CASE EVENT DATE: 20160629
